FAERS Safety Report 7329318-X (Version None)
Quarter: 2011Q1

REPORT INFORMATION
  Report Type: 
  Country: None (occurrence: None)
  Receive Date: 20110218
  Receipt Date: 20110207
  Transmission Date: 20110831
  Serious: Yes (Other)
  Sender: FDA-Public Use
  Company Number: 027120

PATIENT
  Sex: Female

DRUGS (1)
  1. KEPPRA [Suspect]
     Dosage: (1000 MG BID ORAL)
     Route: 048

REACTIONS (3)
  - UNEVALUABLE EVENT [None]
  - MYALGIA [None]
  - HEADACHE [None]
